FAERS Safety Report 10257867 (Version 1)
Quarter: 2014Q2

REPORT INFORMATION
  Report Type: Spontaneous
  Country: FR (occurrence: None)
  Receive Date: 20140620
  Receipt Date: 20140620
  Transmission Date: 20141212
  Serious: Yes (Life-Threatening)
  Sender: FDA-Public Use
  Company Number: FK201402394

PATIENT
  Age: 33 Year
  Sex: Female
  Weight: 61 kg

DRUGS (3)
  1. ROPIVACAINE [Suspect]
     Indication: PRODUCT USED FOR UNKNOWN INDICATION
     Route: 042
  2. BUPIVACAIN (BUPIVACAINE HYDROCHLORIDE) [Concomitant]
  3. SUFENTANIL (SUDENTANIL) [Concomitant]

REACTIONS (1)
  - Generalised tonic-clonic seizure [None]
